FAERS Safety Report 8959456 (Version 1)
Quarter: 2012Q4

REPORT INFORMATION
  Report Type: 
  Country: US (occurrence: US)
  Receive Date: 20121211
  Receipt Date: 20121211
  Transmission Date: 20130627
  Serious: Yes (Hospitalization)
  Sender: FDA-Public Use
  Company Number: US-JNJFOC-20121200151

PATIENT
  Sex: Male

DRUGS (2)
  1. BENADRYL [Suspect]
     Indication: URTICARIA
     Route: 065
     Dates: start: 20121108
  2. NYSTATIN [Suspect]
     Indication: URTICARIA
     Route: 065
     Dates: start: 20121108

REACTIONS (8)
  - Hypertension [Unknown]
  - Palpitations [Unknown]
  - Blood glucose decreased [Unknown]
  - Dizziness [Unknown]
  - Blood iron increased [Unknown]
  - Red blood cell sedimentation rate increased [Unknown]
  - White blood cell count decreased [Unknown]
  - Drug ineffective for unapproved indication [Unknown]
